FAERS Safety Report 6286905-8 (Version None)
Quarter: 2009Q3

REPORT INFORMATION
  Report Type: 
  Country: None (occurrence: None)
  Receive Date: 20090727
  Receipt Date: 20090727
  Transmission Date: 20100115
  Serious: No
  Sender: FDA-Public Use
  Company Number: None

PATIENT
  Sex: Female
  Weight: 104.3273 kg

DRUGS (2)
  1. AMBIEN [Suspect]
     Indication: INSOMNIA
     Dosage: 10 MG EVERY NIGHT PO
     Route: 048
     Dates: start: 20090408, end: 20090601
  2. SONATA [Suspect]
     Dosage: EVERY NIGHT PO
     Route: 048
     Dates: start: 20090601, end: 20090713

REACTIONS (1)
  - DRUG INEFFECTIVE [None]
